FAERS Safety Report 10234198 (Version 1)
Quarter: 2014Q2

REPORT INFORMATION
  Report Type: Spontaneous
  Country: GB (occurrence: GB)
  Receive Date: 20140612
  Receipt Date: 20140612
  Transmission Date: 20141212
  Serious: Yes (Other)
  Sender: FDA-Public Use
  Company Number: PHHY2014GB068806

PATIENT
  Age: 61 Year
  Sex: Male
  Weight: 92.52 kg

DRUGS (14)
  1. CLARITHROMYCIN SANDOZ [Suspect]
     Indication: EAR INFECTION
     Route: 048
     Dates: start: 20140521, end: 20140522
  2. EPIPEN [Concomitant]
     Dosage: 300 MG, UNK
  3. ETORICOXIB [Concomitant]
     Dosage: 60 MG, UNK
  4. FEXOFENADINE HYDROCHLORIDE [Concomitant]
     Dosage: 180 MG, BID
  5. FOSTAIR [Concomitant]
  6. IRBESARTAN [Concomitant]
     Dosage: 150 MG, UNK
  7. LANSOPRAZOLE [Concomitant]
     Dosage: 15 MG, UNK
  8. LORATADINE [Concomitant]
     Dosage: 10 MG, UNK
  9. NYSTATIN [Concomitant]
     Dosage: 1 ML, QID
  10. PIRITON [Concomitant]
  11. SALBUTAMOL SULFATE [Concomitant]
     Dosage: 200 MG, UNK
  12. SIMVASTATIN [Concomitant]
     Dosage: 40 MG, UNK
  13. TRAMADOL HYDROCHLORIDE [Concomitant]
     Dosage: 50 MG, UNK
  14. VENLAFAXINE [Concomitant]
     Dosage: 225 MG, UNK

REACTIONS (2)
  - Dermatitis allergic [Recovered/Resolved with Sequelae]
  - Product substitution issue [Unknown]
